FAERS Safety Report 4580184-5 (Version None)
Quarter: 2005Q1

REPORT INFORMATION
  Report Type: 
  Country: None (occurrence: None)
  Receive Date: 20050214
  Receipt Date: 20041129
  Transmission Date: 20050727
  Serious: Yes (Other)
  Sender: FDA-Public Use
  Company Number: PHBS2004BR16282

PATIENT
  Age: 52 Year
  Sex: Female
  Weight: 63 kg

DRUGS (4)
  1. ZELMAC [Suspect]
     Indication: IRRITABLE BOWEL SYNDROME
     Dosage: 6 MG, UNK
     Route: 048
  2. LEXAPRO [Concomitant]
     Indication: DEPRESSION
     Route: 048
  3. SOMELIN [Concomitant]
     Route: 048
  4. MILICON [Concomitant]

REACTIONS (7)
  - ABDOMINAL DISTENSION [None]
  - DRUG INEFFECTIVE [None]
  - INSOMNIA [None]
  - LEUKOPENIA [None]
  - SWELLING [None]
  - VOMITING [None]
  - WEIGHT INCREASED [None]
